FAERS Safety Report 8221794-3 (Version None)
Quarter: 2012Q1

REPORT INFORMATION
  Report Type: 
  Country: None (occurrence: None)
  Receive Date: 20120320
  Receipt Date: 20120320
  Transmission Date: 20120608
  Serious: Yes (Other)
  Sender: FDA-Public Use
  Company Number: None

PATIENT
  Age: 3 Year
  Sex: Male
  Weight: 17.236 kg

DRUGS (1)
  1. SINGULAIR [Suspect]
     Indication: ASTHMA
     Dosage: 1 TABLET REDUCED TO 1/2 TABLET
     Dates: start: 20100701, end: 20120302

REACTIONS (7)
  - SLEEP TERROR [None]
  - RESTLESSNESS [None]
  - SLEEP DISORDER [None]
  - RETCHING [None]
  - OBSESSIVE-COMPULSIVE DISORDER [None]
  - EMOTIONAL DISORDER [None]
  - SUICIDAL IDEATION [None]
